FAERS Safety Report 10332123 (Version 1)
Quarter: 2014Q3

REPORT INFORMATION
  Report Type: Spontaneous
  Country: US (occurrence: US)
  Receive Date: 20140722
  Receipt Date: 20140722
  Transmission Date: 20150326
  Serious: No
  Sender: FDA-Public Use
  Company Number: US-UNITED THERAPEUTICS-UNT-2014-000507

PATIENT
  Sex: Female
  Weight: 94.97 kg

DRUGS (3)
  1. WARFARIN [Concomitant]
     Active Substance: WARFARIN
     Indication: PRODUCT USED FOR UNKNOWN INDICATION
  2. REVATIO [Concomitant]
     Active Substance: SILDENAFIL CITRATE
     Indication: PRODUCT USED FOR UNKNOWN INDICATION
  3. REMODULIN [Suspect]
     Active Substance: TREPROSTINIL
     Indication: PULMONARY ARTERIAL HYPERTENSION
     Dosage: 0.005 ?G/KG/MIN, CONTINUOUSLY
     Route: 058
     Dates: start: 20140331

REACTIONS (8)
  - Infusion site pain [Unknown]
  - Insomnia [Unknown]
  - Eating disorder [Unknown]
  - Infusion site haemorrhage [Unknown]
  - Headache [Unknown]
  - Tremor [Unknown]
  - Infusion site reaction [Unknown]
  - Crying [Unknown]
